FAERS Safety Report 13528049 (Version 1)
Quarter: 2017Q2

REPORT INFORMATION
  Report Type: Spontaneous
  Country: RO (occurrence: RO)
  Receive Date: 20170509
  Receipt Date: 20170509
  Transmission Date: 20170830
  Serious: Yes (Other)
  Sender: FDA-Public Use
  Company Number: RO-MYLANLABS-2017M1027549

PATIENT

DRUGS (2)
  1. METHOTREXATE. [Suspect]
     Active Substance: METHOTREXATE
     Indication: POLYARTHRITIS
     Route: 065
  2. MEDROL [Suspect]
     Active Substance: METHYLPREDNISOLONE
     Indication: POLYARTHRITIS
     Route: 065

REACTIONS (2)
  - Osteoporosis [Unknown]
  - Humerus fracture [Recovered/Resolved]
